FAERS Safety Report 15468030 (Version 1)
Quarter: 2018Q4

REPORT INFORMATION
  Report Type: Spontaneous
  Country: TR (occurrence: TR)
  Receive Date: 20181005
  Receipt Date: 20181005
  Transmission Date: 20190204
  Serious: Yes (Other)
  Sender: FDA-Public Use
  Company Number: TR-TEVA-2018-TR-960576

PATIENT
  Age: 33 Year
  Sex: Male

DRUGS (3)
  1. HELIPAC TREATMENT PACKAGE (AMOXICILLIN INGREDIENT) [Suspect]
     Active Substance: AMOXICILLIN
     Indication: HELICOBACTER INFECTION
     Route: 048
     Dates: end: 20180921
  2. HELIPAC TREATMENT PACKAGE (CLARITHROMYCIN INGREDIENT) [Suspect]
     Active Substance: CLARITHROMYCIN
     Indication: HELICOBACTER INFECTION
     Route: 048
     Dates: end: 20180921
  3. HELIPAC TREATMENT PACKAGE (LANSOPRAZOLE INGREDIENT) [Suspect]
     Active Substance: LANSOPRAZOLE
     Indication: HELICOBACTER INFECTION
     Route: 048
     Dates: end: 20180921

REACTIONS (7)
  - Pyrexia [Not Recovered/Not Resolved]
  - Depression [Not Recovered/Not Resolved]
  - Aggression [Not Recovered/Not Resolved]
  - Nervousness [Not Recovered/Not Resolved]
  - Tobacco user [Not Recovered/Not Resolved]
  - Pruritus [Not Recovered/Not Resolved]
  - Psychotic disorder [Not Recovered/Not Resolved]
